FAERS Safety Report 11073188 (Version 1)
Quarter: 2015Q2

REPORT INFORMATION
  Report Type: Spontaneous
  Country: US (occurrence: US)
  Receive Date: 20150428
  Receipt Date: 20150428
  Transmission Date: 20150821
  Serious: No
  Sender: FDA-Public Use
  Company Number: US-BAYER-2015-160429

PATIENT
  Age: 72 Year
  Sex: Female
  Weight: 73 kg

DRUGS (5)
  1. MIRALAX [Suspect]
     Active Substance: POLYETHYLENE GLYCOL 3350
     Dosage: 1 DF, QD
     Route: 048
  2. DILTIZEM [Concomitant]
  3. METOPROLOL [Concomitant]
     Active Substance: METOPROLOL
  4. PANTOPRAZOLE [Concomitant]
     Active Substance: PANTOPRAZOLE SODIUM
  5. BAYER LOW DOSE [Concomitant]
     Active Substance: ASPIRIN

REACTIONS (4)
  - Therapeutic response unexpected [Unknown]
  - Incorrect drug administration duration [Unknown]
  - Off label use [Unknown]
  - Wrong technique in drug usage process [Unknown]
